FAERS Safety Report 26019515 (Version 1)
Quarter: 2025Q4

REPORT INFORMATION
  Report Type: Spontaneous
  Country: US (occurrence: None)
  Receive Date: 20251107
  Receipt Date: 20251107
  Transmission Date: 20260117
  Serious: Yes (Other)
  Sender: FDA-CTU
  Company Number: None

PATIENT
  Age: 27 Year
  Sex: Female
  Weight: 60.75 kg

DRUGS (2)
  1. COSMETICS [Suspect]
     Active Substance: COSMETICS
     Dates: start: 20251106, end: 20251107
  2. VITAMINS [Concomitant]
     Active Substance: VITAMINS

REACTIONS (3)
  - Rash pruritic [None]
  - Skin burning sensation [None]
  - Rash [None]

NARRATIVE: CASE EVENT DATE: 20251106
